FAERS Safety Report 19104854 (Version 1)
Quarter: 2021Q2

REPORT INFORMATION
  Report Type: Other
  Country: NL (occurrence: NL)
  Receive Date: 20210407
  Receipt Date: 20210407
  Transmission Date: 20210717
  Serious: No
  Sender: FDA-Public Use
  Company Number: NL-ROCHE-2804935

PATIENT
  Age: 53 Year
  Sex: Female
  Weight: 80 kg

DRUGS (8)
  1. SOLU?MEDROL [Concomitant]
     Active Substance: METHYLPREDNISOLONE SODIUM SUCCINATE
     Indication: PREMEDICATION
     Dosage: SUBSEQUENT DOSE: 29/MAR/2019, 12/SEP/2019, 12/MAR/2020, 24/SEP/2020
     Route: 042
     Dates: start: 20190314
  2. CITALOPRAM [Concomitant]
     Active Substance: CITALOPRAM HYDROBROMIDE
     Indication: DEPRESSION
     Route: 048
     Dates: start: 20190523
  3. OCRELIZUMAB. [Suspect]
     Active Substance: OCRELIZUMAB
     Dosage: SUBSEQUENT DOSE: 12/MAR/2020, 24/SEP/2020
     Route: 042
     Dates: start: 20190912
  4. OCRELIZUMAB. [Suspect]
     Active Substance: OCRELIZUMAB
     Indication: MULTIPLE SCLEROSIS
     Dosage: SUBSEQUENT DOSE: 29/MAR/2019
     Route: 042
     Dates: start: 20190314
  5. AMITRIPTYLINE [Concomitant]
     Active Substance: AMITRIPTYLINE
     Indication: NEURALGIA
     Route: 048
     Dates: start: 20190523
  6. PARACETAMOL [Concomitant]
     Active Substance: ACETAMINOPHEN
     Indication: PREMEDICATION
     Dosage: SUBSEQUENT DOSE: 29/MAR/2019, 12/SEP/2019, 12/MAR/2020, 24/SEP/2020
     Route: 048
     Dates: start: 20190314
  7. CLEMASTINE [Concomitant]
     Active Substance: CLEMASTINE
     Indication: PREMEDICATION
     Dosage: SUBSEQUENT DOSE: 29/MAR/2019, 12/SEP/2019, 12/MAR/2020, 24/SEP/2020
     Route: 042
     Dates: start: 20190314
  8. ETHINYLESTRADIOL;LEVONORGESTREL [Concomitant]
     Active Substance: ETHINYL ESTRADIOL\LEVONORGESTREL
     Indication: PROPHYLAXIS
     Dosage: 30/150 MICROGRAM
     Route: 048

REACTIONS (1)
  - COVID-19 [Recovered/Resolved]

NARRATIVE: CASE EVENT DATE: 20210301
